FAERS Safety Report 4700061-6 (Version None)
Quarter: 2005Q2

REPORT INFORMATION
  Report Type: 
  Country: None (occurrence: None)
  Receive Date: 20050627
  Receipt Date: 20050512
  Transmission Date: 20051028
  Serious: Yes (Other)
  Sender: FDA-Public Use
  Company Number: AU-GLAXOSMITHKLINE-B0381650A

PATIENT
  Age: 54 Year
  Sex: Female

DRUGS (3)
  1. AROPAX [Suspect]
     Indication: DRUG USE FOR UNKNOWN INDICATION
     Route: 065
     Dates: start: 19990201, end: 20050501
  2. PROGYNOVA [Concomitant]
     Indication: HORMONE REPLACEMENT THERAPY
     Dosage: 2MGM UNKNOWN
     Route: 065
     Dates: end: 20040501
  3. REMIFEMIN [Concomitant]
     Route: 065

REACTIONS (2)
  - CEREBROVASCULAR ACCIDENT [None]
  - PARAESTHESIA [None]
